FAERS Safety Report 12633027 (Version 2)
Quarter: 2016Q3

REPORT INFORMATION
  Report Type: Spontaneous
  Country: US (occurrence: US)
  Receive Date: 20160808
  Receipt Date: 20160808
  Transmission Date: 20161109
  Serious: No
  Sender: FDA-Public Use
  Company Number: US-BEH-2016058165

PATIENT
  Sex: Male
  Weight: 74 kg

DRUGS (14)
  1. HIZENTRA [Suspect]
     Active Substance: HUMAN IMMUNOGLOBULIN G
     Indication: IMMUNODEFICIENCY COMMON VARIABLE
     Route: 058
     Dates: start: 20131121
  2. DOXYCYCLINE. [Concomitant]
     Active Substance: DOXYCYCLINE
  3. GABAPENTIN. [Concomitant]
     Active Substance: GABAPENTIN
  4. IBUPROFEN. [Concomitant]
     Active Substance: IBUPROFEN
  5. DIPHENHYDRAMINE. [Concomitant]
     Active Substance: DIPHENHYDRAMINE
  6. EPIPEN [Concomitant]
     Active Substance: EPINEPHRINE
  7. HIZENTRA [Suspect]
     Active Substance: HUMAN IMMUNOGLOBULIN G
     Route: 058
     Dates: start: 20131121
  8. TYLENOL [Concomitant]
     Active Substance: ACETAMINOPHEN
  9. LMX [Concomitant]
     Active Substance: LIDOCAINE
  10. CELECOXIB. [Concomitant]
     Active Substance: CELECOXIB
  11. AMOXICILLIN. [Concomitant]
     Active Substance: AMOXICILLIN
  12. PROBIOTIC [Concomitant]
     Active Substance: PROBIOTICS NOS
  13. VITAMIN B [Concomitant]
     Active Substance: VITAMIN B
  14. MAGNESIUM [Concomitant]
     Active Substance: MAGNESIUM

REACTIONS (5)
  - Vomiting [Unknown]
  - Depression [Unknown]
  - Infection [Unknown]
  - Skin infection [Unknown]
  - Unevaluable event [Unknown]
